FAERS Safety Report 4991472-2 (Version None)
Quarter: 2006Q2

REPORT INFORMATION
  Report Type: 
  Country: None (occurrence: None)
  Receive Date: 20060502
  Receipt Date: 20060424
  Transmission Date: 20061013
  Serious: Yes (Life-Threatening, Hospitalization)
  Sender: FDA-Public Use
  Company Number: 200611549GDS

PATIENT
  Age: 50 Year
  Sex: Male
  Weight: 88 kg

DRUGS (1)
  1. SORAFENIB [Suspect]
     Indication: RENAL CELL CARCINOMA STAGE UNSPECIFIED
     Dosage: 400 MG, BID, ORAL
     Route: 048
     Dates: start: 20051005, end: 20060412

REACTIONS (1)
  - ACUTE MYOCARDIAL INFARCTION [None]
